FAERS Safety Report 6218581-4 (Version None)
Quarter: 2009Q2

REPORT INFORMATION
  Report Type: 
  Country: None (occurrence: None)
  Receive Date: 20090608
  Receipt Date: 20090528
  Transmission Date: 20091009
  Serious: Yes (Death, Other)
  Sender: FDA-Public Use
  Company Number: US-BAXTER-2009BH009343

PATIENT
  Sex: Female

DRUGS (1)
  1. HEPARIN [Suspect]
     Indication: THROMBECTOMY
     Route: 065
     Dates: start: 20080101, end: 20080101

REACTIONS (2)
  - CEREBRAL HAEMORRHAGE [None]
  - PULMONARY EMBOLISM [None]
